FAERS Safety Report 6454676-8 (Version None)
Quarter: 2009Q4

REPORT INFORMATION
  Report Type: 
  Country: None (occurrence: None)
  Receive Date: 20091124
  Receipt Date: 20091112
  Transmission Date: 20100525
  Serious: Yes (Hospitalization)
  Sender: FDA-Public Use
  Company Number: CH-GILEAD-2009-0025377

PATIENT
  Age: 60 Year
  Sex: Male
  Weight: 40 kg

DRUGS (10)
  1. TRUVADA [Suspect]
     Indication: HIV INFECTION
     Route: 048
     Dates: start: 20070704, end: 20090930
  2. VIREAD [Suspect]
     Indication: HIV INFECTION
     Route: 048
     Dates: start: 20060808, end: 20070704
  3. REYATAZ [Suspect]
     Indication: HIV INFECTION
     Route: 048
     Dates: start: 20060808
  4. INVIRASE [Suspect]
     Indication: HIV INFECTION
     Route: 048
     Dates: start: 20060808
  5. NORVIR [Suspect]
     Indication: HIV INFECTION
     Route: 048
     Dates: start: 20060808
  6. 3TC [Suspect]
     Indication: HIV INFECTION
     Route: 048
     Dates: start: 20091001
  7. ZIAGEN [Suspect]
     Dates: start: 20091001, end: 20091010
  8. STOCRIN [Suspect]
     Indication: HIV INFECTION
     Route: 048
     Dates: start: 20091012
  9. PHOSPHA 250 NEUTRA [Concomitant]
     Indication: PHOSPHORUS METABOLISM DISORDER
     Route: 048
     Dates: start: 20090928
  10. POTASSIUM EFFERVESCENT [Concomitant]
     Indication: HYPOKALAEMIA
     Route: 048

REACTIONS (7)
  - FANCONI SYNDROME ACQUIRED [None]
  - GLYCOSURIA [None]
  - HYPOKALAEMIA [None]
  - HYPOPHOSPHATAEMIA [None]
  - NEPHROCALCINOSIS [None]
  - PROTEINURIA [None]
  - RENAL FAILURE CHRONIC [None]
